FAERS Safety Report 17572741 (Version 2)
Quarter: 2020Q1

REPORT INFORMATION
  Report Type: Spontaneous
  Country: JP (occurrence: JP)
  Receive Date: 20200323
  Receipt Date: 20200327
  Transmission Date: 20200409
  Serious: Yes (Hospitalization, Other)
  Sender: FDA-Public Use
  Company Number: JP-AMGEN-JPNSP2020046401

PATIENT
  Age: 52 Year
  Sex: Female

DRUGS (1)
  1. REPATHA [Suspect]
     Active Substance: EVOLOCUMAB
     Indication: TYPE IIA HYPERLIPIDAEMIA
     Dosage: 140 MILLIGRAM
     Route: 058

REACTIONS (6)
  - Shock [Recovering/Resolving]
  - Tooth extraction [Unknown]
  - Cerebral haemorrhage [Recovering/Resolving]
  - Ketoacidosis [Recovering/Resolving]
  - Latent autoimmune diabetes in adults [Unknown]
  - Hypophagia [Unknown]
